FAERS Safety Report 8997072 (Version 1)
Quarter: 2012Q4

REPORT INFORMATION
  Report Type: Spontaneous
  Country: IN (occurrence: None)
  Receive Date: 20121221
  Receipt Date: 20121221
  Transmission Date: 20130627
  Serious: Yes (Hospitalization, Other)
  Sender: FDA-Public Use
  Company Number: AUR-APL-2012-05440

PATIENT
  Age: 24 Year
  Sex: Male

DRUGS (9)
  1. ONDANSETRON (ONDANSETRON) [Suspect]
     Indication: ACUTE GASTROENTERITIS
  2. ONDANSETRON (ONDANSETRON) [Suspect]
     Indication: NAUSEA
  3. OFLOXACIN (OFLOXACIN) [Concomitant]
  4. ORNIDAZOLE (ORNIDAZOLE) [Concomitant]
  5. RIFAMPICIN (RIFAMPICIN) [Concomitant]
  6. ISONIAZID (ISONIAZID) [Concomitant]
  7. ETHAMBUTOL (ETHAMBUTOL) [Concomitant]
  8. PYRAZINAMIDE (PYRAZINAMIDE) [Concomitant]
  9. COTRIMOXAZOLE (BACTRIM) [Concomitant]

REACTIONS (2)
  - Toxic epidermal necrolysis [None]
  - Inflammation [None]
